FAERS Safety Report 15011746 (Version 1)
Quarter: 2018Q2

REPORT INFORMATION
  Report Type: Spontaneous
  Country: HR (occurrence: HR)
  Receive Date: 20180614
  Receipt Date: 20180614
  Transmission Date: 20180711
  Serious: Yes (Hospitalization, Other)
  Sender: FDA-Public Use
  Company Number: HR-BAYER-2018-109968

PATIENT
  Age: 73 Year
  Sex: Female

DRUGS (12)
  1. ALPRAZOLAM. [Concomitant]
     Active Substance: ALPRAZOLAM
     Dosage: 0.25 MG, UNK
  2. SIMVASTATIN. [Concomitant]
     Active Substance: SIMVASTATIN
     Dosage: 20 MG, UNK
  3. CALCITRIOL. [Concomitant]
     Active Substance: CALCITRIOL
     Dosage: 0.25 ?G, BID
  4. ALOPURINOL [Concomitant]
     Active Substance: ALLOPURINOL
     Dosage: 100 MG, UNK
  5. TRAMADOL. [Concomitant]
     Active Substance: TRAMADOL
     Dosage: 37.5 MG, UNK
  6. AMLODIPINE [Concomitant]
     Active Substance: AMLODIPINE BESYLATE
     Dosage: 5 MG, UNK
  7. ASPIRIN PROTECT 100 MG [Suspect]
     Active Substance: ASPIRIN
     Dosage: 100 MG, UNK
  8. DABIGATRAN [Suspect]
     Active Substance: DABIGATRAN
     Dosage: 110 MG, BID
     Dates: start: 201503, end: 201508
  9. AMIODARONE [Concomitant]
     Active Substance: AMIODARONE
     Dosage: 1000 MG, UNK
  10. PANTOPRAZOLE [Concomitant]
     Active Substance: PANTOPRAZOLE
     Dosage: 20 MG, UNK
  11. RAMIPRIL. [Concomitant]
     Active Substance: RAMIPRIL
     Dosage: 2.5 MG, UNK
  12. PARACETAMOL [Concomitant]
     Active Substance: ACETAMINOPHEN
     Dosage: 325 MG, UNK

REACTIONS (17)
  - Left ventricular failure [None]
  - Tricuspid valve incompetence [None]
  - Chronic kidney disease [None]
  - Pulmonary hypertension [None]
  - Musculoskeletal stiffness [None]
  - Dyspnoea [None]
  - Atrial fibrillation [None]
  - Mitral valve incompetence [None]
  - Hyperthyroidism [None]
  - Lip haematoma [None]
  - Oedema peripheral [None]
  - Myocardial ischaemia [None]
  - Anaemia of chronic disease [None]
  - Mucosal haemorrhage [None]
  - Dyspnoea paroxysmal nocturnal [None]
  - Labelled drug-drug interaction medication error [None]
  - Rales [None]

NARRATIVE: CASE EVENT DATE: 2015
